FAERS Safety Report 6295323-8 (Version None)
Quarter: 2009Q3

REPORT INFORMATION
  Report Type: 
  Country: None (occurrence: None)
  Receive Date: 20090729
  Receipt Date: 20090724
  Transmission Date: 20100115
  Serious: Yes (Other)
  Sender: FDA-Public Use
  Company Number: GXKR2009DE08426

PATIENT
  Age: 48 Year
  Sex: Male

DRUGS (1)
  1. DOXYCYCLINE [Suspect]
     Indication: BORRELIA INFECTION
     Dosage: ORAL
     Route: 048

REACTIONS (2)
  - COAGULOPATHY [None]
  - DEEP VEIN THROMBOSIS [None]
